FAERS Safety Report 5498834-8 (Version None)
Quarter: 2007Q4

REPORT INFORMATION
  Report Type: 
  Country: None (occurrence: None)
  Receive Date: 20071026
  Receipt Date: 20070720
  Transmission Date: 20080405
  Serious: No
  Sender: FDA-Public Use
  Company Number: A0666091A

PATIENT
  Age: 74 Year
  Sex: Female

DRUGS (12)
  1. ADVAIR DISKUS 100/50 [Suspect]
     Indication: CHRONIC OBSTRUCTIVE PULMONARY DISEASE
     Dosage: 1PUFF TWICE PER DAY
     Route: 055
     Dates: start: 20040201
  2. SPIRIVA [Concomitant]
  3. DUONEB [Concomitant]
  4. CARDIZEM [Concomitant]
  5. PRILOSEC [Concomitant]
  6. XANAX [Concomitant]
  7. DARVOCET [Concomitant]
  8. MUCINEX [Concomitant]
  9. LASIX [Concomitant]
  10. OXYGEN [Concomitant]
  11. MORPHINE SULFATE [Concomitant]
  12. PHENERGAN HCL [Concomitant]

REACTIONS (2)
  - PRURITUS [None]
  - URTICARIA [None]
